FAERS Safety Report 13130229 (Version 1)
Quarter: 2017Q1

REPORT INFORMATION
  Report Type: Spontaneous
  Country: AU (occurrence: AU)
  Receive Date: 20170119
  Receipt Date: 20170119
  Transmission Date: 20170428
  Serious: Yes (Other)
  Sender: FDA-Public Use
  Company Number: AU-GLAXOSMITHKLINE-AU2017GSK006133

PATIENT
  Age: 50 Year

DRUGS (9)
  1. VOLTAREN [Suspect]
     Active Substance: DICLOFENAC SODIUM
     Indication: DYSKINESIA
  2. BOTOX [Suspect]
     Active Substance: ONABOTULINUMTOXINA
     Indication: TORTICOLLIS
     Dosage: 100 UNITS TOTAL
     Route: 030
     Dates: start: 20120712
  3. LYRICA [Suspect]
     Active Substance: PREGABALIN
     Indication: TREMOR
     Dosage: 150 MG, UNK
     Route: 065
  4. VOLTAREN [Suspect]
     Active Substance: DICLOFENAC SODIUM
     Indication: NECK PAIN
     Dosage: 150 MG, QD
     Route: 065
  5. FLECAINIDE [Concomitant]
     Active Substance: FLECAINIDE
  6. ATENOLOL. [Concomitant]
     Active Substance: ATENOLOL
  7. XARELTO [Suspect]
     Active Substance: RIVAROXABAN
     Indication: ATRIAL FIBRILLATION
  8. LYRICA [Suspect]
     Active Substance: PREGABALIN
     Indication: DYSTONIA
  9. LYRICA [Suspect]
     Active Substance: PREGABALIN
     Indication: NECK PAIN
     Dosage: 75 MG, QD (ONCE AT NIGHT)
     Route: 065

REACTIONS (5)
  - Iron deficiency anaemia [Unknown]
  - Atrial fibrillation [Unknown]
  - Oesophageal discomfort [Unknown]
  - Cardiac disorder [Unknown]
  - Menorrhagia [Unknown]
